FAERS Safety Report 23245303 (Version 1)
Quarter: 2023Q4

REPORT INFORMATION
  Report Type: Report from Study
  Country: US (occurrence: US)
  Receive Date: 20231130
  Receipt Date: 20231130
  Transmission Date: 20240109
  Serious: No
  Sender: FDA-Public Use
  Company Number: US-002147023-NVSC2023US254935

PATIENT
  Sex: Male

DRUGS (1)
  1. COSENTYX [Suspect]
     Active Substance: SECUKINUMAB
     Indication: Psoriasis
     Dosage: UNK EVERY 4 WEEKS
     Route: 058

REACTIONS (4)
  - Lip disorder [Unknown]
  - Psoriasis [Unknown]
  - Macule [Unknown]
  - Neoplasm [Unknown]
